FAERS Safety Report 7955337-6 (Version None)
Quarter: 2011Q4

REPORT INFORMATION
  Report Type: 
  Country: None (occurrence: None)
  Receive Date: 20111202
  Receipt Date: 20111121
  Transmission Date: 20120403
  Serious: Yes (Hospitalization, Other)
  Sender: FDA-Public Use
  Company Number: FR-ELI_LILLY_AND_COMPANY-FR201107002571

PATIENT
  Sex: Male
  Weight: 92 kg

DRUGS (23)
  1. ACETAMINOPHEN AND TRAMADOL HCL [Concomitant]
     Indication: ARTHRALGIA
     Dosage: UNK
     Dates: end: 20110601
  2. PRAVASTATIN [Concomitant]
     Dosage: 20 MG, QD
     Route: 048
  3. LASIX [Concomitant]
     Dosage: 40 MG, QD
     Route: 048
  4. ATROVENT [Concomitant]
     Indication: RESPIRATORY TRACT INFECTION
  5. BYETTA [Suspect]
     Indication: INSULIN-REQUIRING TYPE 2 DIABETES MELLITUS
     Dosage: 10 UG, BID
     Route: 058
     Dates: start: 20100301, end: 20110707
  6. PREDNISOLONE [Concomitant]
  7. PERINDOPRIL ERBUMINE [Concomitant]
     Dosage: 10 MG, QD
     Route: 048
  8. PLAVIX [Concomitant]
     Dosage: 75 MG, QD
     Route: 048
  9. LASIX [Concomitant]
     Dosage: 60 MG, QD
  10. ALLOPURINOL [Concomitant]
     Dosage: 200 MG, QD
  11. OMEPRAZOLE [Concomitant]
     Dosage: UNK
  12. AMARYL [Concomitant]
     Indication: DIABETES MELLITUS
     Dosage: 4 MG, QD
     Route: 048
     Dates: start: 20030101
  13. DIGOXIN [Concomitant]
     Dosage: 1 DF, QD
     Route: 048
  14. CEFPODOXIME PROXETIL [Concomitant]
     Indication: RESPIRATORY TRACT INFECTION
  15. LEVEMIR [Concomitant]
     Dosage: 20 IU, EACH EVENING
  16. SYMBICORT [Concomitant]
     Indication: RESPIRATORY TRACT INFECTION
     Dosage: UNK
  17. LEVEMIR [Concomitant]
     Indication: INSULIN-REQUIRING TYPE 2 DIABETES MELLITUS
     Dosage: 10 IU, EACH MORNING
     Route: 058
  18. CIPROFLOXACIN [Concomitant]
  19. ALLOPURINOL [Concomitant]
     Dosage: 100 MG, QD
     Route: 048
  20. FEXOFENADINE HCL [Concomitant]
     Dosage: 1 DF, QD
  21. GLUCOPHAGE [Concomitant]
     Indication: DIABETES MELLITUS
     Dosage: 850 MG, TID
     Route: 048
     Dates: start: 20010101
  22. PERINDOPRIL ERBUMINE [Concomitant]
     Dosage: 50 MG, QD
  23. MUCOMYST [Concomitant]
     Indication: RESPIRATORY TRACT INFECTION

REACTIONS (5)
  - OFF LABEL USE [None]
  - PANCREATITIS [None]
  - DYSPNOEA [None]
  - WEIGHT DECREASED [None]
  - ABDOMINAL DISCOMFORT [None]
